FAERS Safety Report 6966722-3 (Version None)
Quarter: 2010Q3

REPORT INFORMATION
  Report Type: 
  Country: None (occurrence: None)
  Receive Date: 20100906
  Receipt Date: 20100902
  Transmission Date: 20110219
  Serious: Yes (Other)
  Sender: FDA-Public Use
  Company Number: US-ASTRAZENECA-2007UW18965

PATIENT
  Sex: Male
  Weight: 90.7 kg

DRUGS (1)
  1. SEROQUEL [Suspect]
     Route: 048
     Dates: end: 20060101

REACTIONS (4)
  - NEUROPATHY PERIPHERAL [None]
  - SKIN INJURY [None]
  - TRAUMATIC AMPUTATION [None]
  - TYPE 2 DIABETES MELLITUS [None]
